FAERS Safety Report 13296500 (Version 1)
Quarter: 2017Q1

REPORT INFORMATION
  Report Type: Spontaneous
  Country: FR (occurrence: FR)
  Receive Date: 20170305
  Receipt Date: 20170305
  Transmission Date: 20170428
  Serious: Yes (Hospitalization)
  Sender: FDA-Public Use
  Company Number: FR-ROCHE-1901217

PATIENT
  Age: 68 Year
  Sex: Female

DRUGS (11)
  1. PERJETA [Suspect]
     Active Substance: PERTUZUMAB
     Indication: DISEASE PROGRESSION
     Route: 041
     Dates: start: 201606
  2. HERCEPTIN [Suspect]
     Active Substance: TRASTUZUMAB
     Route: 041
     Dates: start: 201505
  3. LEVOTHYROX [Concomitant]
     Active Substance: LEVOTHYROXINE
     Route: 065
  4. XELODA [Concomitant]
     Active Substance: CAPECITABINE
     Route: 065
  5. HERCEPTIN [Suspect]
     Active Substance: TRASTUZUMAB
     Route: 041
     Dates: start: 2017
  6. HERCEPTIN [Suspect]
     Active Substance: TRASTUZUMAB
     Indication: PRODUCT USED FOR UNKNOWN INDICATION
     Route: 041
     Dates: start: 201111, end: 201209
  7. TAXOL [Concomitant]
     Active Substance: PACLITAXEL
     Route: 065
     Dates: start: 201404
  8. BARACLUDE [Concomitant]
     Active Substance: ENTECAVIR
     Dosage: 0.5MG 1/J
     Route: 065
  9. TYVERB [Concomitant]
     Active Substance: LAPATINIB
     Route: 065
  10. HALAVEN [Concomitant]
     Active Substance: ERIBULIN MESYLATE
     Route: 065
     Dates: start: 201511, end: 201606
  11. KADCYLA [Concomitant]
     Active Substance: ADO-TRASTUZUMAB EMTANSINE
     Route: 065
     Dates: start: 201505

REACTIONS (1)
  - Atrioventricular block second degree [Recovered/Resolved with Sequelae]

NARRATIVE: CASE EVENT DATE: 2017
